FAERS Safety Report 4368789-8 (Version None)
Quarter: 2004Q2

REPORT INFORMATION
  Report Type: 
  Country: None (occurrence: None)
  Receive Date: 20040527
  Receipt Date: 20040510
  Transmission Date: 20050107
  Serious: Yes (Other)
  Sender: FDA-Public Use
  Company Number: US_040199775

PATIENT
  Age: 11 Year
  Sex: Female
  Weight: 37 kg

DRUGS (1)
  1. STRATTERA [Suspect]
     Indication: ATTENTION DEFICIT/HYPERACTIVITY DISORDER
     Dosage: 10 MG/1 DAY
     Dates: start: 20031117, end: 20031118

REACTIONS (5)
  - DECREASED APPETITE [None]
  - DIZZINESS [None]
  - FEELING ABNORMAL [None]
  - LOSS OF CONSCIOUSNESS [None]
  - VOMITING [None]
